FAERS Safety Report 16357556 (Version 1)
Quarter: 2019Q2

REPORT INFORMATION
  Report Type: Spontaneous
  Country: FR (occurrence: FR)
  Receive Date: 20190527
  Receipt Date: 20190527
  Transmission Date: 20190711
  Serious: Yes (Hospitalization)
  Sender: FDA-Public Use
  Company Number: FR-AMGEN-FRASP2019081189

PATIENT
  Age: 67 Year
  Sex: Male

DRUGS (2)
  1. CAPRELSA [Suspect]
     Active Substance: VANDETANIB
     Indication: THYROID NEOPLASM
     Dosage: UNK
     Route: 048
     Dates: start: 20190224, end: 20190426
  2. XGEVA [Suspect]
     Active Substance: DENOSUMAB
     Indication: THYROID NEOPLASM
     Dosage: UNK
     Route: 058
     Dates: start: 20190301

REACTIONS (1)
  - Rash maculo-papular [Not Recovered/Not Resolved]

NARRATIVE: CASE EVENT DATE: 201903
